FAERS Safety Report 8912996 (Version 1)
Quarter: 2012Q4

REPORT INFORMATION
  Report Type: Spontaneous
  Country: US (occurrence: None)
  Receive Date: 20121114
  Receipt Date: 20121114
  Transmission Date: 20130627
  Serious: Yes (Hospitalization)
  Sender: FDA-Public Use
  Company Number: None

PATIENT
  Sex: Male
  Weight: 82 kg

DRUGS (1)
  1. ALFA 2 INTERFERON 2B (INTRON-A) [Suspect]
     Dosage: 203 mU
     Dates: end: 20120210

REACTIONS (5)
  - Myalgia [None]
  - Fatigue [None]
  - Malaise [None]
  - Myositis [None]
  - Blood creatine phosphokinase increased [None]
